FAERS Safety Report 20472058 (Version 1)
Quarter: 2022Q1

REPORT INFORMATION
  Report Type: Other
  Country: FR (occurrence: FR)
  Receive Date: 20220214
  Receipt Date: 20220214
  Transmission Date: 20220423
  Serious: Yes (Life-Threatening, Other)
  Sender: FDA-Public Use
  Company Number: FR-Santen Oy-2022-FRA-000627

PATIENT
  Age: 69 Year
  Sex: Female

DRUGS (1)
  1. CYCLOSPORINE [Suspect]
     Active Substance: CYCLOSPORINE
     Indication: Dry eye
     Dosage: UNK
     Route: 047

REACTIONS (1)
  - Malignant neoplasm of conjunctiva [Not Recovered/Not Resolved]

NARRATIVE: CASE EVENT DATE: 20160321
